FAERS Safety Report 4603107-9 (Version None)
Quarter: 2005Q1

REPORT INFORMATION
  Report Type: 
  Country: None (occurrence: None)
  Receive Date: 20050309
  Receipt Date: 20050222
  Transmission Date: 20050727
  Serious: Yes (Hospitalization, Other)
  Sender: FDA-Public Use
  Company Number: A0546660A

PATIENT
  Sex: Female
  Weight: 54 kg

DRUGS (24)
  1. ECOTRIN ADULT LOW STRENGTH TABLETS [Suspect]
     Route: 048
     Dates: start: 19940101
  2. CITRUCEL [Suspect]
     Route: 048
     Dates: start: 19940101
  3. ZESTRIL [Concomitant]
     Indication: BLOOD PRESSURE
     Route: 048
  4. SYNTHROID [Concomitant]
     Indication: HYPOTHYROIDISM
     Route: 048
  5. PLAVIX [Concomitant]
     Route: 048
  6. CLONOPIN [Concomitant]
     Indication: ANXIETY
     Route: 048
  7. MIRAPEX [Concomitant]
     Indication: PARKINSONISM
     Route: 048
  8. LANOXIN [Concomitant]
     Indication: SUPRAVENTRICULAR TACHYCARDIA
     Route: 048
  9. ZETIA [Concomitant]
     Route: 048
  10. PRAVACHOL [Concomitant]
     Route: 048
  11. ACTONEL [Concomitant]
     Indication: OSTEOPOROSIS
     Route: 048
  12. ZOLOFT [Concomitant]
     Indication: DEPRESSION
     Route: 048
  13. B12 [Concomitant]
     Route: 060
  14. VITAMIN E [Concomitant]
     Route: 048
  15. CITRACAL + D [Concomitant]
     Indication: BONE DENSITOMETRY
     Route: 048
  16. MULTIVITAMIN [Concomitant]
     Route: 048
  17. SUPER DHA45 [Concomitant]
     Route: 048
  18. SELENIUM TRACE METAL ADDITIVE [Concomitant]
     Route: 048
  19. ZINC [Concomitant]
     Route: 048
  20. TYLENOL (CAPLET) [Concomitant]
     Route: 048
  21. LACTOSE MEDICATION (UNSPECIFIED) [Concomitant]
     Indication: LACTOSE INTOLERANCE
  22. RHINOCORT [Concomitant]
  23. THROAT GARGLE [Concomitant]
     Indication: LARYNGITIS
  24. BEANO TABLETS [Concomitant]
     Route: 048
     Dates: start: 19940101

REACTIONS (8)
  - ABDOMINAL PAIN [None]
  - AMNESIA [None]
  - CEREBROVASCULAR ACCIDENT [None]
  - GAIT DISTURBANCE [None]
  - HYDROCEPHALUS [None]
  - NERVOUS SYSTEM DISORDER [None]
  - PERFORMANCE STATUS DECREASED [None]
  - SPEECH DISORDER [None]
